FAERS Safety Report 19454670 (Version 1)
Quarter: 2021Q2

REPORT INFORMATION
  Report Type: Spontaneous
  Country: KR (occurrence: KR)
  Receive Date: 20210623
  Receipt Date: 20210623
  Transmission Date: 20210717
  Serious: Yes (Other)
  Sender: FDA-Public Use
  Company Number: KR-PFIZER INC-2021681010

PATIENT
  Age: 49 Year
  Sex: Male

DRUGS (1)
  1. METHOTREXATE SODIUM. [Suspect]
     Active Substance: METHOTREXATE SODIUM
     Indication: LYMPHOMA
     Dosage: 400UG IN 0.1ML IN THE RIGHT EYE

REACTIONS (6)
  - Corneal opacity [Recovering/Resolving]
  - Off label use [Unknown]
  - Corneal disorder [Recovering/Resolving]
  - Conjunctival hyperaemia [Recovering/Resolving]
  - Product use issue [Unknown]
  - Punctate keratitis [Recovering/Resolving]
